FAERS Safety Report 12295684 (Version 3)
Quarter: 2016Q3

REPORT INFORMATION
  Report Type: Spontaneous
  Country: DE (occurrence: DE)
  Receive Date: 20160422
  Receipt Date: 20160813
  Transmission Date: 20161109
  Serious: Yes (Other)
  Sender: FDA-Public Use
  Company Number: DE-JNJFOC-20160418136

PATIENT
  Sex: Male
  Weight: 78 kg

DRUGS (3)
  1. METOPROLOL. [Concomitant]
     Active Substance: METOPROLOL
     Indication: HYPERTENSION
     Route: 065
     Dates: start: 20151201
  2. XARELTO [Suspect]
     Active Substance: RIVAROXABAN
     Indication: CEREBROVASCULAR ACCIDENT PROPHYLAXIS
     Route: 048
     Dates: start: 20151201
  3. XARELTO [Suspect]
     Active Substance: RIVAROXABAN
     Indication: ATRIAL FIBRILLATION
     Route: 048
     Dates: start: 20151201

REACTIONS (11)
  - Rash macular [Recovered/Resolved]
  - Chromaturia [Unknown]
  - Alopecia [Unknown]
  - Contusion [Recovering/Resolving]
  - Gingival bleeding [Unknown]
  - Solar lentigo [Unknown]
  - Nail disorder [Unknown]
  - Hernia repair [Unknown]
  - Faeces discoloured [Unknown]
  - Dysuria [Unknown]
  - Erythema [Recovered/Resolved]
